FAERS Safety Report 4948118-9 (Version None)
Quarter: 2006Q1

REPORT INFORMATION
  Report Type: 
  Country: None (occurrence: None)
  Receive Date: 20060320
  Receipt Date: 20050425
  Transmission Date: 20060701
  Serious: Yes (Hospitalization)
  Sender: FDA-Public Use
  Company Number: FR-SANOFI-SYNTHELABO-A02200501139

PATIENT
  Age: 32 Year
  Sex: Male

DRUGS (2)
  1. ELOXATIN [Suspect]
     Indication: HEPATIC CANCER METASTATIC
     Dosage: UNK
     Route: 042
     Dates: start: 20050203, end: 20050203
  2. XELODA [Suspect]
     Indication: HEPATIC CANCER METASTATIC
     Dosage: UNK
     Route: 048
     Dates: start: 20050203

REACTIONS (5)
  - HYPERAESTHESIA [None]
  - OEDEMA PERIPHERAL [None]
  - PAIN [None]
  - PARAESTHESIA [None]
  - QUADRIPARESIS [None]
